FAERS Safety Report 4930698-0 (Version None)
Quarter: 2006Q1

REPORT INFORMATION
  Report Type: 
  Country: None (occurrence: None)
  Receive Date: 20060227
  Receipt Date: 20060214
  Transmission Date: 20060701
  Serious: Yes (Other)
  Sender: FDA-Public Use
  Company Number: 2006024396

PATIENT
  Sex: Male
  Weight: 94.8018 kg

DRUGS (2)
  1. VIAGRA [Suspect]
     Indication: ERECTILE DYSFUNCTION
     Dosage: 6 YEARS AGO
  2. BENADRYL [Concomitant]

REACTIONS (5)
  - ARTHRALGIA [None]
  - ARTHROPATHY [None]
  - DIABETES MELLITUS [None]
  - DRUG INEFFECTIVE [None]
  - LIGAMENT INJURY [None]
